FAERS Safety Report 19896060 (Version 2)
Quarter: 2021Q4

REPORT INFORMATION
  Report Type: Spontaneous
  Country: JP (occurrence: None)
  Receive Date: 20210929
  Receipt Date: 20211101
  Transmission Date: 20220303
  Serious: Yes (Death, Hospitalization)
  Sender: FDA-Public Use
  Company Number: 2021A743838

PATIENT
  Age: 76 Year
  Sex: Male

DRUGS (1)
  1. FASENRA [Suspect]
     Active Substance: BENRALIZUMAB
     Indication: Asthma
     Route: 058
     Dates: start: 20210816, end: 20210913

REACTIONS (3)
  - Pneumonia [Fatal]
  - Pneumonia bacterial [Fatal]
  - Pyrexia [Unknown]

NARRATIVE: CASE EVENT DATE: 20210920
